FAERS Safety Report 6395256-2 (Version None)
Quarter: 2009Q4

REPORT INFORMATION
  Report Type: 
  Country: None (occurrence: None)
  Receive Date: 20091009
  Receipt Date: 20090918
  Transmission Date: 20100525
  Serious: Yes (Other)
  Sender: FDA-Public Use
  Company Number: JP-PFIZER INC-2009226230

PATIENT
  Age: 68 Year

DRUGS (10)
  1. VFEND [Suspect]
     Indication: BRONCHOPULMONARY ASPERGILLOSIS
     Dosage: 200 MG, 1X/DAY
     Route: 042
     Dates: start: 20061122, end: 20061217
  2. VFEND [Suspect]
     Dosage: 200 MG, 1X/DAY
     Route: 042
     Dates: start: 20061219, end: 20061228
  3. VFEND [Suspect]
     Dosage: 200 MG, 1X/DAY
     Route: 042
     Dates: start: 20070103, end: 20070223
  4. VFEND [Suspect]
     Dosage: 200 MG, 2X/DAY
     Route: 048
     Dates: start: 20061109, end: 20061121
  5. VFEND [Suspect]
     Dosage: 200 MG, 2X/DAY
     Route: 048
     Dates: start: 20061229, end: 20070102
  6. VFEND [Suspect]
     Dosage: 200 MG, 2X/DAY
     Route: 048
     Dates: start: 20070224, end: 20070226
  7. VFEND [Suspect]
     Dosage: 150 MG, 2X/DAY
     Route: 048
     Dates: start: 20070227, end: 20070522
  8. VFEND [Suspect]
     Dosage: 200 MG, 2X/DAY
     Route: 048
     Dates: start: 20070523, end: 20071003
  9. VFEND [Suspect]
     Dosage: 250 MG, 2X/DAY
     Route: 048
     Dates: start: 20071010, end: 20071201
  10. VFEND [Suspect]
     Dosage: 250 MG, 2X/DAY
     Route: 048
     Dates: start: 20071212, end: 20080409

REACTIONS (1)
  - INAPPROPRIATE ANTIDIURETIC HORMONE SECRETION [None]
